FAERS Safety Report 7184109-8 (Version None)
Quarter: 2010Q4

REPORT INFORMATION
  Report Type: 
  Country: None (occurrence: None)
  Receive Date: 20101222
  Receipt Date: 20101210
  Transmission Date: 20110411
  Serious: Yes (Other)
  Sender: FDA-Public Use
  Company Number: PHHY2009BR53741

PATIENT
  Sex: Female
  Weight: 54 kg

DRUGS (2)
  1. DIOVAN [Suspect]
     Indication: HYPERTENSION
     Dosage: 1 DF, BID
     Route: 048
     Dates: start: 19990101
  2. SYNTHROID [Concomitant]
     Indication: HYPERTHYROIDISM
     Dosage: 1 TABLET IN THE MORNING IN FASTING
     Route: 048

REACTIONS (3)
  - CATARACT [None]
  - DIABETES MELLITUS [None]
  - VISUAL IMPAIRMENT [None]
